FAERS Safety Report 5835717-5 (Version None)
Quarter: 2008Q3

REPORT INFORMATION
  Report Type: 
  Country: None (occurrence: None)
  Receive Date: 20080725
  Receipt Date: 20080125
  Transmission Date: 20090109
  Serious: Yes (Hospitalization, Other)
  Sender: FDA-Public Use
  Company Number: 44613

PATIENT
  Age: 67 Year
  Sex: Female
  Weight: 94 kg

DRUGS (1)
  1. ETOPOSIDE [Suspect]
     Indication: SMALL CELL LUNG CANCER STAGE UNSPECIFIED
     Dosage: 194 IV
     Route: 042
     Dates: start: 20071212

REACTIONS (3)
  - ABDOMINAL INFECTION [None]
  - FEBRILE NEUTROPENIA [None]
  - INFECTION [None]
